FAERS Safety Report 7860967-6 (Version None)
Quarter: 2011Q4

REPORT INFORMATION
  Report Type: 
  Country: None (occurrence: None)
  Receive Date: 20111027
  Receipt Date: 20111018
  Transmission Date: 20120403
  Serious: Yes (Hospitalization)
  Sender: FDA-Public Use
  Company Number: US-GLAXOSMITHKLINE-A0878761A

PATIENT
  Sex: Female
  Weight: 134.1 kg

DRUGS (10)
  1. AVANDIA [Suspect]
     Indication: DIABETES MELLITUS
     Dosage: 4MG PER DAY
     Route: 048
     Dates: start: 20050501, end: 20100601
  2. AVANDAMET [Suspect]
     Indication: DIABETES MELLITUS
     Route: 048
     Dates: start: 20040301, end: 20050201
  3. METFORMIN HCL [Concomitant]
  4. PROAIR HFA [Concomitant]
  5. ALBUTEROL [Concomitant]
  6. ATENOLOL [Concomitant]
  7. GLIPIZIDE [Concomitant]
  8. COZAAR [Concomitant]
  9. LIPITOR [Concomitant]
  10. SINGULAIR [Concomitant]

REACTIONS (7)
  - CORONARY ARTERY DISEASE [None]
  - CEREBROVASCULAR ACCIDENT [None]
  - CORONARY ARTERY BYPASS [None]
  - CARDIAC ARREST [None]
  - FLUID RETENTION [None]
  - HEART INJURY [None]
  - FLUID OVERLOAD [None]
